FAERS Safety Report 4464858-2 (Version None)
Quarter: 2004Q4

REPORT INFORMATION
  Report Type: 
  Country: None (occurrence: None)
  Receive Date: 20041004
  Receipt Date: 20031201
  Transmission Date: 20050328
  Serious: No
  Sender: FDA-Public Use
  Company Number: 356720

PATIENT
  Age: 65 Year
  Sex: Male

DRUGS (5)
  1. COREG [Suspect]
     Dosage: 6.25MG TWICE PER DAY
     Route: 048
     Dates: start: 20021201
  2. LANOXIN [Concomitant]
  3. HYTRIN [Concomitant]
  4. COUMADIN [Concomitant]
  5. ASTELIN [Concomitant]

REACTIONS (2)
  - EYE IRRITATION [None]
  - LACRIMATION INCREASED [None]
